FAERS Safety Report 7865748-5 (Version None)
Quarter: 2011Q4

REPORT INFORMATION
  Report Type: 
  Country: None (occurrence: None)
  Receive Date: 20111028
  Receipt Date: 20110216
  Transmission Date: 20120403
  Serious: No
  Sender: FDA-Public Use
  Company Number: US-GLAXOSMITHKLINE-A0913990A

PATIENT
  Age: 74 Year
  Sex: Male

DRUGS (16)
  1. CARVEDILOL [Concomitant]
  2. SUPER B COMPLEX [Concomitant]
  3. CO Q 10 [Concomitant]
  4. M.V.I. [Concomitant]
  5. VITAMIN D [Concomitant]
  6. ZYRTEC [Concomitant]
  7. SIMVASTATIN [Concomitant]
  8. WARFARIN SODIUM [Concomitant]
  9. ADVAIR DISKUS 100/50 [Suspect]
     Indication: CHRONIC OBSTRUCTIVE PULMONARY DISEASE
     Dosage: 1PUFF TWICE PER DAY
     Route: 055
     Dates: start: 20090101
  10. DULERA ORAL INHALATION [Suspect]
     Dosage: 100MCG TWICE PER DAY
     Route: 065
  11. ISOSORBIDE DINITRATE [Concomitant]
  12. FISH OIL [Concomitant]
  13. ASPIRIN [Concomitant]
  14. DIETARY SUPPLEMENT [Concomitant]
     Indication: PROPHYLAXIS
  15. FLUTICASONE PROPIONATE [Concomitant]
  16. VENTOLIN [Concomitant]

REACTIONS (2)
  - APHONIA [None]
  - DRUG INEFFECTIVE [None]
